FAERS Safety Report 12869252 (Version 1)
Quarter: 2016Q4

REPORT INFORMATION
  Report Type: Spontaneous
  Country: ES (occurrence: ES)
  Receive Date: 20161021
  Receipt Date: 20161021
  Transmission Date: 20170207
  Serious: Yes (Hospitalization)
  Sender: FDA-Public Use
  Company Number: ES-ROCHE-1844962

PATIENT
  Age: 61 Year
  Sex: Female

DRUGS (7)
  1. OMEPRAZOL [Concomitant]
     Active Substance: OMEPRAZOLE
     Route: 048
  2. SEROPRAM (SPAIN) [Concomitant]
     Dosage: SEROPRAM 20 MG COMPRIMIDOS RECUBIERTOS CON PELICULA , 28 COMPRIMIDOS
     Route: 048
  3. LORMETAZEPAM [Concomitant]
     Active Substance: LORMETAZEPAM
     Route: 048
  4. XELODA [Suspect]
     Active Substance: CAPECITABINE
     Indication: COLON CANCER
     Dosage: XELODA 150 MG COMPRIMIDOS RECUBIERTOS CON PELICULA, 60 COMPRIMIDOS
     Route: 048
     Dates: start: 20160926, end: 20160929
  5. CLEXANE [Concomitant]
     Active Substance: ENOXAPARIN SODIUM
     Dosage: CLEXANE 80 MG (8000 U.I.) SOLUCION INYECTABLE EN JERINGA PRECARGADA ,
     Route: 048
  6. MIRTAZAPINA [Concomitant]
     Active Substance: MIRTAZAPINE
     Route: 048
  7. METOCLOPRAMIDA [Concomitant]
     Active Substance: METOCLOPRAMIDE HYDROCHLORIDE
     Route: 048

REACTIONS (2)
  - Arteriospasm coronary [Recovered/Resolved]
  - Angina unstable [Recovered/Resolved]

NARRATIVE: CASE EVENT DATE: 20160929
